FAERS Safety Report 26104442 (Version 2)
Quarter: 2025Q4

REPORT INFORMATION
  Report Type: Spontaneous
  Country: TH (occurrence: TH)
  Receive Date: 20251130
  Receipt Date: 20251201
  Transmission Date: 20260117
  Serious: Yes (Death, Other)
  Sender: MERCK SHARP & DOHME LLC
  Company Number: TH-009507513-2313935

PATIENT
  Age: 77 Year
  Sex: Male

DRUGS (4)
  1. KEYTRUDA [Suspect]
     Active Substance: PEMBROLIZUMAB
     Indication: Non-small cell lung cancer
     Dosage: 200 MG, IV, Q 3 WEEKS
     Route: 042
     Dates: start: 20250612, end: 20250612
  2. KEYTRUDA [Suspect]
     Active Substance: PEMBROLIZUMAB
     Indication: Non-small cell lung cancer
     Dosage: 200 MG, IV, Q 3WEEKS
     Route: 042
     Dates: start: 20250703, end: 20250703
  3. KEYTRUDA [Suspect]
     Active Substance: PEMBROLIZUMAB
     Indication: Non-small cell lung cancer
     Dosage: 200 MG, IV, Q 3WEEKS
     Route: 042
     Dates: start: 20250723, end: 20250723
  4. KEYTRUDA [Suspect]
     Active Substance: PEMBROLIZUMAB
     Indication: Non-small cell lung cancer
     Dosage: 200 MG, IV, Q 3WEEKS
     Route: 042
     Dates: start: 20251107, end: 20251107

REACTIONS (3)
  - Death [Fatal]
  - Lymphoma [Not Recovered/Not Resolved]
  - Inappropriate schedule of product administration [Unknown]

NARRATIVE: CASE EVENT DATE: 20250723
